FAERS Safety Report 4376609-0 (Version None)
Quarter: 2004Q2

REPORT INFORMATION
  Report Type: 
  Country: None (occurrence: None)
  Receive Date: 20040608
  Receipt Date: 20040524
  Transmission Date: 20050107
  Serious: Yes (Death)
  Sender: FDA-Public Use
  Company Number: US-JNJFOC-20040505278

PATIENT
  Age: 39 Year
  Sex: Male

DRUGS (5)
  1. DURAGESIC [Suspect]
     Indication: INTENTIONAL MISUSE
     Dosage: INTRAVENOUS
     Route: 042
  2. HYDROCODONE (HYDROCODONE) [Suspect]
     Indication: DRUG USE FOR UNKNOWN INDICATION
  3. OXYCODONE HCL [Suspect]
     Indication: DRUG USE FOR UNKNOWN INDICATION
  4. ALPRAZOLAM [Concomitant]
  5. PROPOXYPHENE HCL [Concomitant]

REACTIONS (11)
  - ACCIDENT [None]
  - CARDIOMEGALY [None]
  - COMA [None]
  - DRUG TOXICITY [None]
  - FOREIGN BODY TRAUMA [None]
  - HEPATOSPLENOMEGALY [None]
  - MALAISE [None]
  - PHARYNGOLARYNGEAL PAIN [None]
  - PYREXIA [None]
  - SKIN DISORDER [None]
  - VENTRICULAR HYPERTROPHY [None]
